FAERS Safety Report 10361044 (Version 2)
Quarter: 2014Q3

REPORT INFORMATION
  Report Type: Spontaneous
  Country: AT (occurrence: AT)
  Receive Date: 20140804
  Receipt Date: 20140804
  Transmission Date: 20150326
  Serious: Yes (Other)
  Sender: FDA-Public Use
  Company Number: AT-ASTRAZENECA-2014SE46250

PATIENT
  Age: 45 Year
  Sex: Male
  Weight: 113.5 kg

DRUGS (35)
  1. STRATTERA [Suspect]
     Active Substance: ATOMOXETINE HYDROCHLORIDE
     Indication: ATTENTION DEFICIT/HYPERACTIVITY DISORDER
     Dosage: 80
     Route: 065
     Dates: start: 20140424, end: 20140428
  2. SEROQUEL [Suspect]
     Active Substance: QUETIAPINE FUMARATE
     Indication: DEPRESSION
     Dosage: 100, DAILY
     Route: 048
     Dates: start: 20140427, end: 20140427
  3. SEROQUEL [Suspect]
     Active Substance: QUETIAPINE FUMARATE
     Indication: DEPRESSION
     Dosage: 50, DAILY
     Route: 048
     Dates: start: 20140513, end: 20140513
  4. SEROQUEL [Suspect]
     Active Substance: QUETIAPINE FUMARATE
     Indication: DEPRESSION
     Dosage: 100, DAILY
     Route: 048
     Dates: start: 20140514, end: 20140525
  5. TRESLEEN [Concomitant]
     Active Substance: SERTRALINE HYDROCHLORIDE
     Dosage: 100
     Dates: start: 20140522, end: 20140522
  6. IXEL [Concomitant]
     Active Substance: MILNACIPRAN HYDROCHLORIDE
     Dosage: 100
     Dates: start: 20140528, end: 20140603
  7. MAGNOSOLV [Concomitant]
     Dosage: 1 X1
     Dates: start: 20140606, end: 20140615
  8. SEROQUEL [Suspect]
     Active Substance: QUETIAPINE FUMARATE
     Indication: DEPRESSION
     Dosage: 50, DAILY
     Route: 048
     Dates: start: 20140422, end: 20140422
  9. SEROQUEL [Suspect]
     Active Substance: QUETIAPINE FUMARATE
     Indication: DEPRESSION
     Dosage: 100, DAILY
     Route: 048
     Dates: start: 20140512, end: 20140512
  10. ALPRAZOLAM. [Concomitant]
     Active Substance: ALPRAZOLAM
     Dosage: 0.25
     Dates: start: 20140420, end: 20140420
  11. SEROQUEL [Suspect]
     Active Substance: QUETIAPINE FUMARATE
     Indication: DEPRESSION
     Dosage: 50, DAILY
     Route: 048
     Dates: start: 20140516, end: 20140516
  12. RITALIN [Suspect]
     Active Substance: METHYLPHENIDATE HYDROCHLORIDE
     Indication: ATTENTION DEFICIT/HYPERACTIVITY DISORDER
     Route: 065
     Dates: start: 20140507, end: 20140514
  13. TRESLEEN [Concomitant]
     Active Substance: SERTRALINE HYDROCHLORIDE
     Dosage: 150
     Dates: start: 20140523, end: 20140526
  14. IXEL [Concomitant]
     Active Substance: MILNACIPRAN HYDROCHLORIDE
     Dosage: 50
     Dates: start: 20140527, end: 20140527
  15. TRITTICO [Concomitant]
     Active Substance: TRAZODONE HYDROCHLORIDE
     Dosage: 300
     Dates: start: 20140606
  16. NOZINAN [Concomitant]
     Active Substance: LEVOMEPROMAZINE
     Dosage: 150
     Dates: start: 20140610, end: 20140611
  17. SEROQUEL [Suspect]
     Active Substance: QUETIAPINE FUMARATE
     Indication: DEPRESSION
     Dosage: 75, DAILY
     Route: 048
     Dates: start: 20140423, end: 20140424
  18. SEROQUEL [Suspect]
     Active Substance: QUETIAPINE FUMARATE
     Indication: DEPRESSION
     Dosage: 75, DAILY
     Route: 048
     Dates: start: 20140428, end: 20140429
  19. SEROQUEL [Suspect]
     Active Substance: QUETIAPINE FUMARATE
     Indication: DEPRESSION
     Route: 048
     Dates: start: 20140430, end: 20140511
  20. TRESLEEN [Concomitant]
     Active Substance: SERTRALINE HYDROCHLORIDE
     Dosage: 50
     Dates: start: 20140512, end: 20140521
  21. TRITTICO [Concomitant]
     Active Substance: TRAZODONE HYDROCHLORIDE
     Dosage: 150
     Dates: start: 20140605, end: 20140605
  22. SEROQUEL [Suspect]
     Active Substance: QUETIAPINE FUMARATE
     Indication: DEPRESSION
     Dosage: 75, DAILY
     Route: 048
     Dates: start: 20140426, end: 20140426
  23. ALPRAZOLAM. [Concomitant]
     Active Substance: ALPRAZOLAM
     Dosage: 0.75
     Dates: start: 20140418, end: 20140419
  24. SIMVASTATIN. [Concomitant]
     Active Substance: SIMVASTATIN
     Dates: start: 20140430
  25. IXEL [Concomitant]
     Active Substance: MILNACIPRAN HYDROCHLORIDE
     Dosage: 250
     Dates: start: 20140613
  26. SEROQUEL [Suspect]
     Active Substance: QUETIAPINE FUMARATE
     Indication: DEPRESSION
     Dosage: 100, DAILY
     Route: 048
     Dates: start: 20140425, end: 20140425
  27. TRITTICO [Concomitant]
     Active Substance: TRAZODONE HYDROCHLORIDE
     Dosage: 75
     Dates: start: 20140603, end: 20140604
  28. NOZINAN [Concomitant]
     Active Substance: LEVOMEPROMAZINE
     Dosage: 100
     Dates: start: 20140606, end: 20140609
  29. RITALIN [Suspect]
     Active Substance: METHYLPHENIDATE HYDROCHLORIDE
     Indication: ATTENTION DEFICIT/HYPERACTIVITY DISORDER
     Route: 065
     Dates: start: 20140515, end: 20140515
  30. STRATTERA [Suspect]
     Active Substance: ATOMOXETINE HYDROCHLORIDE
     Indication: ATTENTION DEFICIT/HYPERACTIVITY DISORDER
     Dosage: 40
     Route: 065
     Dates: start: 20140416, end: 20140423
  31. STRATTERA [Suspect]
     Active Substance: ATOMOXETINE HYDROCHLORIDE
     Indication: ATTENTION DEFICIT/HYPERACTIVITY DISORDER
     Route: 065
     Dates: start: 20140429, end: 20140513
  32. ALPRAZOLAM. [Concomitant]
     Active Substance: ALPRAZOLAM
     Dosage: 0.5
     Dates: start: 20140417, end: 20140417
  33. IXEL [Concomitant]
     Active Substance: MILNACIPRAN HYDROCHLORIDE
     Dosage: 150
     Dates: start: 20140604, end: 20140609
  34. IXEL [Concomitant]
     Active Substance: MILNACIPRAN HYDROCHLORIDE
     Dosage: 200
     Dates: start: 20140610, end: 20140612
  35. NOZINAN [Concomitant]
     Active Substance: LEVOMEPROMAZINE
     Dosage: 50
     Dates: start: 20140605, end: 20140605

REACTIONS (4)
  - Delusion [Unknown]
  - Drug ineffective for unapproved indication [Unknown]
  - Depression [Unknown]
  - Tachycardia [Recovered/Resolved]

NARRATIVE: CASE EVENT DATE: 20140508
